FAERS Safety Report 4271802-X (Version None)
Quarter: 2004Q1

REPORT INFORMATION
  Report Type: 
  Country: None (occurrence: None)
  Receive Date: 20040115
  Receipt Date: 20040107
  Transmission Date: 20041129
  Serious: Yes (Life-Threatening, Disabling)
  Sender: FDA-Public Use
  Company Number: NL-GLAXOSMITHKLINE-B0319104A

PATIENT
  Age: 35 Year
  Sex: Female

DRUGS (2)
  1. BUPROPION HYDROCHLORIDE [Suspect]
     Indication: SMOKING CESSATION THERAPY
     Route: 065
     Dates: start: 20030929, end: 20031002
  2. ETHINYLESTRADIOL + LEVONORGESTREL [Concomitant]

REACTIONS (1)
  - CEREBRAL INFARCTION [None]
